FAERS Safety Report 8582565-1 (Version None)
Quarter: 2012Q3

REPORT INFORMATION
  Report Type: 
  Country: None (occurrence: None)
  Receive Date: 20120809
  Receipt Date: 20120805
  Transmission Date: 20120928
  Serious: Yes (Hospitalization)
  Sender: FDA-Public Use
  Company Number: JP-AMGEN-JPNCT2011018601

PATIENT
  Age: 80 Year
  Sex: Male
  Weight: 54 kg

DRUGS (10)
  1. OXALIPLATIN [Concomitant]
     Indication: COLORECTAL CANCER
     Dosage: 85 MG, Q2WK
     Route: 041
     Dates: start: 20101213, end: 20110130
  2. LEVOLEUCOVORIN CALCIUM [Concomitant]
     Dosage: 50 MG, Q2WK
     Route: 041
     Dates: start: 20110214, end: 20110215
  3. LEVOLEUCOVORIN CALCIUM [Concomitant]
     Indication: COLORECTAL CANCER
     Dosage: 100 MG, Q2WK
     Route: 041
     Dates: start: 20101213, end: 20110130
  4. FLUOROURACIL [Concomitant]
     Dosage: 600 MG, Q2WK
     Route: 041
     Dates: start: 20101213, end: 20110213
  5. OXALIPLATIN [Concomitant]
     Dosage: 30 MG, Q2WK
     Route: 041
     Dates: start: 20110214, end: 20110214
  6. LEVOLEUCOVORIN CALCIUM [Concomitant]
     Dosage: 75 MG, Q2WK
     Route: 041
     Dates: start: 20110131, end: 20110201
  7. OXALIPLATIN [Concomitant]
     Dosage: 50 MG, Q2WK
     Route: 041
     Dates: start: 20110131, end: 20110131
  8. FLUOROURACIL [Concomitant]
     Indication: COLORECTAL CANCER
     Dosage: 400 MG, Q2WK
     Route: 040
     Dates: start: 20101213, end: 20110214
  9. PANITUMUMAB [Suspect]
     Indication: COLORECTAL CANCER
     Dosage: 336 MG, Q2WK
     Route: 041
     Dates: start: 20101213, end: 20110214
  10. FLUOROURACIL [Concomitant]
     Dosage: 500 MG, Q2WK
     Route: 041
     Dates: start: 20110214, end: 20110215

REACTIONS (3)
  - BONE MARROW FAILURE [None]
  - RASH [None]
  - INTERSTITIAL LUNG DISEASE [None]
